FAERS Safety Report 24743416 (Version 2)
Quarter: 2024Q4

REPORT INFORMATION
  Report Type: Spontaneous
  Country: SG (occurrence: SG)
  Receive Date: 20241217
  Receipt Date: 20241220
  Transmission Date: 20250115
  Serious: Yes (Hospitalization, Other)
  Sender: PFIZER
  Company Number: SG-MLMSERVICE-20241204-PI276361-00201-1

PATIENT
  Age: 87 Year
  Sex: Male

DRUGS (5)
  1. LIDOCAINE HYDROCHLORIDE [Suspect]
     Active Substance: LIDOCAINE HYDROCHLORIDE
     Indication: Sedation
     Dosage: 5 ML
     Route: 058
  2. LIDOCAINE HYDROCHLORIDE [Suspect]
     Active Substance: LIDOCAINE HYDROCHLORIDE
     Indication: Facet joint block
  3. LIDOCAINE HYDROCHLORIDE [Suspect]
     Active Substance: LIDOCAINE HYDROCHLORIDE
     Indication: Local anaesthesia
  4. OXYGEN [Concomitant]
     Active Substance: OXYGEN
     Dosage: 5L/MIN;VIA A HUDSON FACE MASK
     Route: 055
  5. MIDAZOLAM [Concomitant]
     Active Substance: MIDAZOLAM
     Indication: Sedation
     Dosage: 1 MG
     Route: 042

REACTIONS (7)
  - Accidental high spinal anaesthesia [Recovered/Resolved]
  - Respiratory disorder [Recovered/Resolved]
  - Quadriplegia [Recovered/Resolved]
  - Oxygen saturation decreased [Recovered/Resolved]
  - Heart rate increased [Recovered/Resolved]
  - Hypertension [Recovered/Resolved]
  - Aphonia [Recovered/Resolved]
